FAERS Safety Report 6306149-0 (Version None)
Quarter: 2009Q3

REPORT INFORMATION
  Report Type: 
  Country: None (occurrence: None)
  Receive Date: 20090810
  Receipt Date: 20090729
  Transmission Date: 20100115
  Serious: Yes (Hospitalization)
  Sender: FDA-Public Use
  Company Number: 2009AL002567

PATIENT
  Age: 61 Year
  Sex: Female

DRUGS (17)
  1. DIGOXIN [Suspect]
     Dosage: 0.25MG, DAILY, PO
     Route: 048
     Dates: start: 20050401
  2. PROMETHAZINE [Concomitant]
  3. FLUOXETINE [Concomitant]
  4. HYDROCODONE [Concomitant]
  5. LORAZEPAM [Concomitant]
  6. CYPROHEPTADINE HCL [Concomitant]
  7. HYDROCHLOROTHIAZIDE [Concomitant]
  8. CLARINEX [Concomitant]
  9. COMBIVENT [Concomitant]
  10. LASIX [Concomitant]
  11. PROZAC [Concomitant]
  12. LISINOPRIL [Concomitant]
  13. DOXYCYCLINE [Concomitant]
  14. ASPIRIN [Concomitant]
  15. MUCINEX [Concomitant]
  16. COUMADIN [Concomitant]
  17. GUAIFENESIN [Concomitant]

REACTIONS (11)
  - ALCOHOL WITHDRAWAL SYNDROME [None]
  - DIARRHOEA [None]
  - DYSPNOEA [None]
  - ECONOMIC PROBLEM [None]
  - HEART RATE IRREGULAR [None]
  - ILL-DEFINED DISORDER [None]
  - INJURY [None]
  - NAUSEA [None]
  - THERAPEUTIC AGENT TOXICITY [None]
  - TREMOR [None]
  - VOMITING [None]
